FAERS Safety Report 18035426 (Version 1)
Quarter: 2020Q3

REPORT INFORMATION
  Report Type: Spontaneous
  Country: US (occurrence: US)
  Receive Date: 20200716
  Receipt Date: 20200716
  Transmission Date: 20201103
  Serious: No
  Sender: FDA-Public Use
  Company Number: None

PATIENT
  Age: 60 Year
  Sex: Female
  Weight: 108.86 kg

DRUGS (1)
  1. HUMIRA [Suspect]
     Active Substance: ADALIMUMAB
     Indication: POLYARTHRITIS
     Dosage: ?          OTHER FREQUENCY:EVERY 2 WEEKS AS DIRECTED?
     Route: 058
     Dates: start: 201704

REACTIONS (2)
  - Malaise [None]
  - Therapy interrupted [None]
